FAERS Safety Report 6325416-8 (Version None)
Quarter: 2009Q3

REPORT INFORMATION
  Report Type: 
  Country: None (occurrence: None)
  Receive Date: 20090824
  Receipt Date: 20090716
  Transmission Date: 20100115
  Serious: No
  Sender: FDA-Public Use
  Company Number: US-ABBOTT-09P-163-0586151-00

PATIENT
  Sex: Female
  Weight: 81.72 kg

DRUGS (18)
  1. NIASPAN [Suspect]
     Indication: BLOOD TRIGLYCERIDES INCREASED
     Dates: start: 20090702
  2. NIASPAN [Suspect]
     Indication: BLOOD CHOLESTEROL INCREASED
  3. AMLODIPINE [Concomitant]
     Indication: HYPERTENSION
  4. LOVASA [Concomitant]
     Indication: DRUG USE FOR UNKNOWN INDICATION
  5. FOLTEX [Concomitant]
     Indication: DRUG USE FOR UNKNOWN INDICATION
  6. JANUVIA [Concomitant]
     Indication: DIABETES MELLITUS
  7. GLIPIZIDE [Concomitant]
     Indication: DIABETES MELLITUS
  8. BYETTA [Concomitant]
     Indication: DIABETES MELLITUS
  9. METOPROLOL [Concomitant]
     Indication: CORONARY ARTERY BYPASS
  10. POTASSIUM CHLORIDE [Concomitant]
     Indication: BLOOD POTASSIUM DECREASED
  11. FUROSEMIDE [Concomitant]
     Indication: FLUID RETENTION
  12. OMEPRAZOLE [Concomitant]
     Indication: GASTROOESOPHAGEAL REFLUX DISEASE
  13. CRESTOR [Concomitant]
     Indication: BLOOD CHOLESTEROL INCREASED
     Dates: start: 20090702
  14. MIRTAZAPINE [Concomitant]
     Indication: INSOMNIA
  15. ALPHAGAN [Concomitant]
     Indication: MACULAR DEGENERATION
  16. CALCIUM [Concomitant]
     Indication: DRUG USE FOR UNKNOWN INDICATION
  17. ASPIRIN [Concomitant]
     Indication: DRUG USE FOR UNKNOWN INDICATION
  18. EYE CAP VITAMIN [Concomitant]
     Indication: DRUG USE FOR UNKNOWN INDICATION

REACTIONS (1)
  - BLOOD GLUCOSE INCREASED [None]
